FAERS Safety Report 7940162-2 (Version None)
Quarter: 2011Q4

REPORT INFORMATION
  Report Type: 
  Country: None (occurrence: None)
  Receive Date: 20111125
  Receipt Date: 20070316
  Transmission Date: 20120403
  Serious: Yes (Other)
  Sender: FDA-Public Use
  Company Number: PHHY2007AR011308

PATIENT
  Sex: Female

DRUGS (1)
  1. DIOVAN HCT [Suspect]
     Indication: HYPERTENSION
     Dates: start: 20060701

REACTIONS (3)
  - SPINAL FRACTURE [None]
  - FALL [None]
  - LIGAMENT SPRAIN [None]
